FAERS Safety Report 14798074 (Version 1)
Quarter: 2018Q2

REPORT INFORMATION
  Report Type: Spontaneous
  Country: US (occurrence: US)
  Receive Date: 20180414
  Receipt Date: 20180414
  Transmission Date: 20180711
  Serious: No
  Sender: FDA-Public Use
  Company Number: None

PATIENT
  Age: 39 Year
  Sex: Female
  Weight: 117 kg

DRUGS (11)
  1. ZYZOR [Concomitant]
  2. LISINOPRIL. [Concomitant]
     Active Substance: LISINOPRIL
  3. ZANAFLEX [Concomitant]
     Active Substance: TIZANIDINE HYDROCHLORIDE
  4. PANCREAZE [Concomitant]
     Active Substance: PANCRELIPASE AMYLASE\PANCRELIPASE LIPASE\PANCRELIPASE PROTEASE
  5. PLAQUENIL [Concomitant]
     Active Substance: HYDROXYCHLOROQUINE SULFATE
  6. EXTRA STRENGTH PAIN RELIEVER PM [Suspect]
     Active Substance: ACETAMINOPHEN\DIPHENHYDRAMINE HYDROCHLORIDE
     Indication: PAIN
     Dosage: ?          QUANTITY:2 CAPLETS;?
     Route: 048
     Dates: start: 20180330, end: 20180413
  7. PREDNISONE. [Concomitant]
     Active Substance: PREDNISONE
  8. CLONIDINE. [Concomitant]
     Active Substance: CLONIDINE
  9. GABAPENTIN. [Concomitant]
     Active Substance: GABAPENTIN
  10. AMLODEPINE [Concomitant]
  11. SINGULAIR [Concomitant]
     Active Substance: MONTELUKAST SODIUM

REACTIONS (6)
  - Dyspnoea [None]
  - Vomiting [None]
  - Nervous system disorder [None]
  - Restlessness [None]
  - Dyskinesia [None]
  - Abdominal pain upper [None]

NARRATIVE: CASE EVENT DATE: 20180413
